FAERS Safety Report 10167862 (Version 1)
Quarter: 2014Q2

REPORT INFORMATION
  Report Type: Spontaneous
  Country: US (occurrence: US)
  Receive Date: 20140512
  Receipt Date: 20140512
  Transmission Date: 20141212
  Serious: No
  Sender: FDA-Public Use
  Company Number: US-PFIZER INC-2014127748

PATIENT
  Sex: Male

DRUGS (7)
  1. XANAX [Suspect]
     Indication: ANXIETY
     Dosage: UNK
  2. TRICOR [Interacting]
     Indication: BLOOD CHOLESTEROL INCREASED
     Dosage: 145 MG, 1X/DAY (1 IN 1 D)
     Dates: start: 201403
  3. WELLBUTRIN [Interacting]
     Indication: DEPRESSION
     Dosage: UNK
  4. CYMBALTA [Interacting]
     Indication: DEPRESSION
     Dosage: UNK
  5. INSULIN [Concomitant]
     Indication: DIABETES MELLITUS
     Dosage: UNK
  6. ACTOS [Concomitant]
     Indication: DIABETES MELLITUS
     Dosage: UNK
  7. LYRICA [Concomitant]
     Indication: NEUROPATHY PERIPHERAL
     Dosage: UNK

REACTIONS (5)
  - Drug dispensing error [Unknown]
  - Drug interaction [Unknown]
  - Flatulence [Unknown]
  - Diarrhoea [Unknown]
  - Depression [Unknown]
